FAERS Safety Report 23835667 (Version 1)
Quarter: 2024Q2

REPORT INFORMATION
  Report Type: Spontaneous
  Country: US (occurrence: US)
  Receive Date: 20240509
  Receipt Date: 20240509
  Transmission Date: 20240716
  Serious: No
  Sender: FDA-Public Use
  Company Number: US-AMNEAL PHARMACEUTICALS-2024-AMRX-00776

PATIENT

DRUGS (2)
  1. ZOMIG [Suspect]
     Active Substance: ZOLMITRIPTAN
     Indication: Product used for unknown indication
     Route: 045
  2. ZOMIG [Suspect]
     Active Substance: ZOLMITRIPTAN
     Indication: Product used for unknown indication
     Route: 048

REACTIONS (5)
  - Adverse event [Unknown]
  - Feeling abnormal [Unknown]
  - Oropharyngeal pain [Unknown]
  - Chest discomfort [Unknown]
  - Somnolence [Unknown]
